FAERS Safety Report 4672501-2 (Version None)
Quarter: 2005Q2

REPORT INFORMATION
  Report Type: 
  Country: None (occurrence: None)
  Receive Date: 20050524
  Receipt Date: 20050510
  Transmission Date: 20051028
  Serious: Yes (Hospitalization, Other)
  Sender: FDA-Public Use
  Company Number: 200510932DE

PATIENT
  Age: 23 Year
  Sex: Female
  Weight: 65 kg

DRUGS (3)
  1. LANTUS [Suspect]
     Route: 042
     Dates: start: 20050510
  2. ALT-INSULIN [Concomitant]
     Route: 042
     Dates: start: 20050510
  3. ALCOHOL [Concomitant]
     Dates: start: 20050510

REACTIONS (2)
  - SOMNOLENCE [None]
  - SUICIDE ATTEMPT [None]
